FAERS Safety Report 9904217 (Version 2)
Quarter: 2014Q1

REPORT INFORMATION
  Report Type: Report from Study
  Country: US (occurrence: US)
  Receive Date: 20140218
  Receipt Date: 20140218
  Transmission Date: 20141002
  Serious: Yes (Hospitalization)
  Sender: FDA-Public Use
  Company Number: US-ACTELION-A-US2013-87451

PATIENT
  Age: 59 Year
  Sex: Female

DRUGS (2)
  1. VELETRI [Suspect]
     Indication: PULMONARY ARTERIAL HYPERTENSION
     Dosage: 33.5 NG/KG, PER MIN
     Route: 042
     Dates: start: 20100712
  2. COUMADIN [Concomitant]

REACTIONS (2)
  - Heart and lung transplant [Unknown]
  - Transplant evaluation [Not Recovered/Not Resolved]
